FAERS Safety Report 4364785-5 (Version None)
Quarter: 2004Q2

REPORT INFORMATION
  Report Type: 
  Country: None (occurrence: None)
  Receive Date: 20040521
  Receipt Date: 20040506
  Transmission Date: 20050107
  Serious: Yes (Hospitalization)
  Sender: FDA-Public Use
  Company Number: 2004AP02238

PATIENT
  Age: 77 Year
  Sex: Female

DRUGS (3)
  1. TENORMIN [Suspect]
     Indication: VENTRICULAR EXTRASYSTOLES
     Dosage: 12.5 MG DAILY PO
     Route: 048
     Dates: start: 20040331, end: 20040331
  2. MEXITIL [Suspect]
     Dosage: 250 MG DAILY PO
     Route: 048
     Dates: start: 20040331, end: 20040331
  3. CRAVIT [Concomitant]

REACTIONS (3)
  - ENANTHEMA [None]
  - LYMPHOCYTE STIMULATION TEST POSITIVE [None]
  - RASH [None]
